FAERS Safety Report 8363105-9 (Version None)
Quarter: 2012Q2

REPORT INFORMATION
  Report Type: 
  Country: None (occurrence: None)
  Receive Date: 20120516
  Receipt Date: 20120504
  Transmission Date: 20120825
  Serious: Yes (Hospitalization)
  Sender: FDA-Public Use
  Company Number: US-JNJFOC-20120412136

PATIENT
  Sex: Female
  Weight: 40.5 kg

DRUGS (9)
  1. PREDNISONE [Concomitant]
  2. MESALAMINE [Concomitant]
     Route: 048
  3. OMEPRAZOLE [Concomitant]
  4. KENALOG [Concomitant]
  5. VITAMIN D [Concomitant]
  6. INFLIXIMAB, RECOMBINANT [Suspect]
     Indication: INFLAMMATORY BOWEL DISEASE
     Route: 042
     Dates: start: 20060301
  7. IRON [Concomitant]
  8. ANTIBIOTICS [Concomitant]
     Indication: INFLAMMATORY BOWEL DISEASE
  9. THALIDOMIDE [Concomitant]

REACTIONS (1)
  - CROHN'S DISEASE [None]
